FAERS Safety Report 6504307-3 (Version None)
Quarter: 2009Q4

REPORT INFORMATION
  Report Type: 
  Country: None (occurrence: None)
  Receive Date: 20091215
  Receipt Date: 20091201
  Transmission Date: 20100525
  Serious: Yes (Death, Hospitalization)
  Sender: FDA-Public Use
  Company Number: 002791

PATIENT
  Sex: Male

DRUGS (3)
  1. CERTOLIZUMAB PEGOL (CERTOLIZUMAB PEGOL) [Suspect]
     Indication: CROHN'S DISEASE
     Dosage: (SUBCUTANEOUS)
     Route: 058
  2. COLCHICINE [Concomitant]
  3. AZATHIOPRINE [Concomitant]

REACTIONS (22)
  - ACUTE RESPIRATORY DISTRESS SYNDROME [None]
  - AGITATION [None]
  - ANASTOMOTIC COMPLICATION [None]
  - ANURIA [None]
  - ASPIRATION [None]
  - BRADYARRHYTHMIA [None]
  - CARDIOVASCULAR INSUFFICIENCY [None]
  - CLOSTRIDIUM DIFFICILE COLITIS [None]
  - CONDITION AGGRAVATED [None]
  - CROHN'S DISEASE [None]
  - DELIRIUM [None]
  - DEVICE RELATED INFECTION [None]
  - DIALYSIS [None]
  - EFFUSION [None]
  - ENTEROBACTER INFECTION [None]
  - GENERALISED OEDEMA [None]
  - HEPATIC HAEMATOMA [None]
  - HEPATIC HAEMORRHAGE [None]
  - MULTI-ORGAN FAILURE [None]
  - PNEUMONIA STAPHYLOCOCCAL [None]
  - RENAL FAILURE ACUTE [None]
  - SEPTIC SHOCK [None]
